FAERS Safety Report 5093427-9 (Version None)
Quarter: 2006Q3

REPORT INFORMATION
  Report Type: 
  Country: None (occurrence: None)
  Receive Date: 20060829
  Receipt Date: 20060816
  Transmission Date: 20061208
  Serious: Yes (Other)
  Sender: FDA-Public Use
  Company Number: US018127

PATIENT
  Age: 84 Year
  Sex: Female

DRUGS (7)
  1. TRISENOX [Suspect]
     Indication: ACUTE PROMYELOCYTIC LEUKAEMIA
     Dosage: 5 MG 0.13MG/KG/DAY QD INTRAVENOUS DRIP
     Route: 041
     Dates: start: 20051031, end: 20051108
  2. TRISENOX [Suspect]
     Indication: ACUTE PROMYELOCYTIC LEUKAEMIA
     Dosage: 2.5 MG 0.07MG/KG/DAY QD INTRAVENOUS DRIP
     Route: 041
     Dates: start: 20051109, end: 20051211
  3. TRISENOX [Suspect]
     Indication: ACUTE PROMYELOCYTIC LEUKAEMIA
     Dosage: 3.8 MG 0.1MG/KG/DAY QD INTRAVENOUS DRIP
     Route: 041
     Dates: start: 20051212, end: 20051229
  4. NICORANDIL [Concomitant]
  5. FUROSEMIDE [Concomitant]
  6. VORICONAZOLE [Concomitant]
  7. FAMOTIDINE [Concomitant]

REACTIONS (4)
  - GROIN PAIN [None]
  - PAIN IN EXTREMITY [None]
  - PYREXIA [None]
  - WHITE BLOOD CELL COUNT DECREASED [None]
